FAERS Safety Report 24181209 (Version 7)
Quarter: 2025Q4

REPORT INFORMATION
  Report Type: Report from Study
  Country: CO (occurrence: CO)
  Receive Date: 20240806
  Receipt Date: 20251224
  Transmission Date: 20260117
  Serious: Yes (Other)
  Sender: TAKEDA
  Company Number: CO-TAKEDA-2022TUS098678

PATIENT
  Age: 40 Year
  Sex: Male
  Weight: 82 kg

DRUGS (2)
  1. VEDOLIZUMAB [Suspect]
     Active Substance: VEDOLIZUMAB
     Indication: Crohn^s disease
     Dosage: 300 MILLIGRAM
  2. VEDOLIZUMAB [Suspect]
     Active Substance: VEDOLIZUMAB
     Dosage: 300 MILLIGRAM, Q4WEEKS

REACTIONS (13)
  - Crohn^s disease [Unknown]
  - Productive cough [Recovering/Resolving]
  - Pain [Recovering/Resolving]
  - Proctalgia [Recovering/Resolving]
  - Treatment noncompliance [Unknown]
  - Frequent bowel movements [Recovering/Resolving]
  - Gastrointestinal inflammation [Recovering/Resolving]
  - Otitis media [Unknown]
  - Abdominal pain [Recovering/Resolving]
  - Nasal congestion [Recovering/Resolving]
  - Abdominal distension [Unknown]
  - Arthralgia [Recovering/Resolving]
  - Drug ineffective [Unknown]

NARRATIVE: CASE EVENT DATE: 20221211
